FAERS Safety Report 9096268 (Version 2)
Quarter: 2013Q1

REPORT INFORMATION
  Report Type: Report from Study
  Country: US (occurrence: US)
  Receive Date: 20130207
  Receipt Date: 20130212
  Transmission Date: 20140127
  Serious: Yes (Hospitalization)
  Sender: FDA-Public Use
  Company Number: US-ROCHE-1188121

PATIENT
  Age: 36 Year
  Sex: Female

DRUGS (7)
  1. XOLAIR [Suspect]
     Indication: ASTHMA
     Route: 058
     Dates: start: 20121218
  2. XOLAIR [Suspect]
     Indication: TRANSPLANT
     Route: 065
     Dates: start: 20130121
  3. ADVAIR [Concomitant]
     Indication: ASTHMA
     Route: 055
     Dates: start: 20090217
  4. SINGULAIR [Concomitant]
     Indication: ASTHMA
     Route: 048
     Dates: start: 20090129
  5. LORATADINE [Concomitant]
     Indication: HYPERSENSITIVITY
     Route: 048
  6. OMEPRAZOLE [Concomitant]
     Indication: GASTROOESOPHAGEAL REFLUX DISEASE
     Route: 048
     Dates: start: 20120720
  7. PATADAY [Concomitant]
     Indication: HYPERSENSITIVITY
     Route: 065
     Dates: start: 20101108

REACTIONS (1)
  - Asthma [Recovered/Resolved]
